FAERS Safety Report 5103175-4 (Version None)
Quarter: 2006Q3

REPORT INFORMATION
  Report Type: 
  Country: None (occurrence: None)
  Receive Date: 20060908
  Receipt Date: 20060908
  Transmission Date: 20061208
  Serious: Yes (Other)
  Sender: FDA-Public Use
  Company Number: None

PATIENT
  Sex: Female
  Weight: 91.6266 kg

DRUGS (1)
  1. ULTRAM SR [Suspect]
     Indication: TENDONITIS
     Dosage: 100 MG 1 DAILY ORAL HS
     Route: 048
     Dates: start: 20060706

REACTIONS (2)
  - BLOOD GLUCOSE DECREASED [None]
  - FALL [None]
